FAERS Safety Report 9737305 (Version 2)
Quarter: 2014Q1

REPORT INFORMATION
  Report Type: Spontaneous
  Country: US (occurrence: US)
  Receive Date: 20131206
  Receipt Date: 20140204
  Transmission Date: 20141002
  Serious: No
  Sender: FDA-Public Use
  Company Number: US-BIOGENIDEC-2013BI095454

PATIENT
  Age: 63 Year
  Sex: Female

DRUGS (3)
  1. TECFIDERA [Suspect]
     Indication: RELAPSING-REMITTING MULTIPLE SCLEROSIS
     Dates: start: 20130603
  2. TECFIDERA [Suspect]
     Indication: RELAPSING-REMITTING MULTIPLE SCLEROSIS
     Route: 048
     Dates: start: 20130626, end: 20130626
  3. TECFIDERA [Suspect]
     Indication: RELAPSING-REMITTING MULTIPLE SCLEROSIS
     Route: 048
     Dates: start: 2013

REACTIONS (9)
  - Stress [Recovered/Resolved]
  - Adverse event [Unknown]
  - Urinary tract infection [Unknown]
  - Gastrointestinal disorder [Recovered/Resolved]
  - Flushing [Not Recovered/Not Resolved]
  - Abdominal discomfort [Unknown]
  - Pruritus [Unknown]
  - Rash [Unknown]
  - Gastritis [Unknown]
